FAERS Safety Report 7626882-8 (Version None)
Quarter: 2011Q3

REPORT INFORMATION
  Report Type: 
  Country: None (occurrence: None)
  Receive Date: 20110721
  Receipt Date: 20110715
  Transmission Date: 20111222
  Serious: Yes (Hospitalization, Other)
  Sender: FDA-Public Use
  Company Number: BR-SANOFI-AVENTIS-2011SA045560

PATIENT
  Age: 83 Year
  Sex: Male
  Weight: 61 kg

DRUGS (7)
  1. DIAMICRON [Concomitant]
     Route: 048
  2. LANTUS [Suspect]
     Route: 058
     Dates: end: 20110601
  3. NOVORAPID [Concomitant]
     Route: 058
  4. LANTUS [Suspect]
     Route: 058
     Dates: start: 20110601, end: 20110712
  5. AUTOPEN 24 [Suspect]
     Dates: end: 20110712
  6. LYRICA [Concomitant]
     Indication: HEADACHE
     Route: 048
  7. AMITRIPTYLINE HCL [Concomitant]
     Indication: HEADACHE
     Route: 048

REACTIONS (4)
  - HERPES ZOSTER [None]
  - HYPERGLYCAEMIA [None]
  - PNEUMONIA [None]
  - POST HERPETIC NEURALGIA [None]
